FAERS Safety Report 7751288-0 (Version None)
Quarter: 2011Q3

REPORT INFORMATION
  Report Type: 
  Country: None (occurrence: None)
  Receive Date: 20110914
  Receipt Date: 20110906
  Transmission Date: 20111222
  Serious: Yes (Hospitalization)
  Sender: FDA-Public Use
  Company Number: JP-CEPHALON-2011004604

PATIENT
  Sex: Male

DRUGS (2)
  1. TREANDA [Suspect]
     Indication: MANTLE CELL LYMPHOMA
     Route: 042
     Dates: start: 20110324, end: 20110721
  2. RITUXIMAB [Suspect]
     Indication: MANTLE CELL LYMPHOMA
     Route: 042
     Dates: start: 20110325, end: 20110720

REACTIONS (4)
  - WHITE BLOOD CELL COUNT DECREASED [None]
  - LYMPHOCYTE PERCENTAGE DECREASED [None]
  - PNEUMOCYSTIS JIROVECI PNEUMONIA [None]
  - NEUTROPHIL PERCENTAGE INCREASED [None]
